FAERS Safety Report 21298494 (Version 1)
Quarter: 2022Q3

REPORT INFORMATION
  Report Type: Report from Study
  Country: DE (occurrence: DE)
  Receive Date: 20220906
  Receipt Date: 20220906
  Transmission Date: 20221027
  Serious: Yes (Other)
  Sender: FDA-Public Use
  Company Number: DE-GLAXOSMITHKLINE-DECH2022GSK031476

PATIENT

DRUGS (1)
  1. IBUPROFEN [Suspect]
     Active Substance: IBUPROFEN
     Indication: Product used for unknown indication
     Dosage: 400 MG

REACTIONS (5)
  - Stillbirth [Unknown]
  - Premature separation of placenta [Unknown]
  - Amniotic fluid volume decreased [Unknown]
  - Umbilical cord abnormality [Unknown]
  - Exposure during pregnancy [Unknown]
